FAERS Safety Report 9851687 (Version 2)
Quarter: 2014Q2

REPORT INFORMATION
  Report Type: Spontaneous
  Country: US (occurrence: US)
  Receive Date: 20140129
  Receipt Date: 20140403
  Transmission Date: 20141212
  Serious: No
  Sender: FDA-Public Use
  Company Number: US-009507513-1401USA010873

PATIENT
  Sex: Female

DRUGS (1)
  1. NASONEX [Suspect]
     Dosage: 2 SPRAYS EACH NOSTRIL, DAILY
     Route: 045
     Dates: start: 2011, end: 201312

REACTIONS (1)
  - Dizziness [Unknown]
